FAERS Safety Report 10530913 (Version 1)
Quarter: 2014Q4

REPORT INFORMATION
  Report Type: Spontaneous
  Country: US (occurrence: US)
  Receive Date: 20141021
  Receipt Date: 20141021
  Transmission Date: 20150528
  Serious: Yes (Hospitalization, Other)
  Sender: FDA-Public Use
  Company Number: US-GLAXOSMITHKLINE-US2014GSK008018

PATIENT
  Sex: Female

DRUGS (4)
  1. NEBULIZER (NAME UNKNOWN) [Concomitant]
  2. NEXIUM [Concomitant]
     Active Substance: ESOMEPRAZOLE MAGNESIUM
  3. ADVAIR DISKUS [Suspect]
     Active Substance: FLUTICASONE PROPIONATE\SALMETEROL XINAFOATE
     Indication: CHRONIC OBSTRUCTIVE PULMONARY DISEASE
     Dosage: 1 PUFF(S), BID
     Dates: start: 1999, end: 2012
  4. VENTOLIN [Suspect]
     Active Substance: ALBUTEROL SULFATE
     Indication: ASTHMA
     Dosage: UNK, PRN
     Dates: start: 1984

REACTIONS (10)
  - Benign neoplasm of thyroid gland [Not Recovered/Not Resolved]
  - Cataract [Unknown]
  - Oropharyngeal pain [Unknown]
  - Cataract operation [Unknown]
  - Breast cancer [Recovered/Resolved]
  - Blood calcium increased [Not Recovered/Not Resolved]
  - Parathyroid tumour [Unknown]
  - Thyroid cancer [Unknown]
  - Oral pain [Unknown]
  - Hyperparathyroidism [Not Recovered/Not Resolved]

NARRATIVE: CASE EVENT DATE: 1999
